FAERS Safety Report 5780209-5 (Version None)
Quarter: 2008Q2

REPORT INFORMATION
  Report Type: 
  Country: None (occurrence: None)
  Receive Date: 20080620
  Receipt Date: 20080609
  Transmission Date: 20081010
  Serious: Yes (Other)
  Sender: FDA-Public Use
  Company Number: JP-ASTRAZENECA-2008SE02345

PATIENT
  Age: 83 Year
  Sex: Male
  Weight: 48 kg

DRUGS (38)
  1. BLOPRESS [Suspect]
     Indication: CARDIAC FAILURE CHRONIC
     Route: 048
     Dates: start: 20070221
  2. LANSOPRAZOLE [Concomitant]
     Indication: GASTRIC ULCER
     Route: 048
     Dates: start: 20070220, end: 20070228
  3. CERCINE [Concomitant]
     Indication: PROPHYLAXIS
     Route: 048
     Dates: start: 20070615, end: 20070615
  4. CARVEDILOL [Concomitant]
     Indication: CARDIAC FAILURE CHRONIC
     Route: 048
     Dates: start: 20070221, end: 20070227
  5. CARVEDILOL [Concomitant]
     Route: 048
     Dates: start: 20070228, end: 20070319
  6. CARVEDILOL [Concomitant]
     Route: 048
     Dates: start: 20070614
  7. BIOFERMIN R [Concomitant]
     Indication: CONSTIPATION
     Route: 048
  8. EXCELASE [Concomitant]
     Indication: PROPHYLAXIS AGAINST GASTROINTESTINAL ULCER
     Route: 048
  9. MUCOSTA [Concomitant]
     Indication: PROPHYLAXIS AGAINST GASTROINTESTINAL ULCER
     Route: 048
  10. GASMOTIN [Concomitant]
     Indication: PROPHYLAXIS AGAINST GASTROINTESTINAL ULCER
     Route: 048
  11. RABEPRAZOLE SODIUM [Concomitant]
     Indication: GASTRIC ULCER
     Route: 048
  12. MICARDIS [Concomitant]
     Indication: HYPERTENSION
     Route: 048
     Dates: end: 20070221
  13. OSTELUC [Concomitant]
     Indication: SEASONAL ALLERGY
     Route: 048
  14. SOLANAX [Concomitant]
     Indication: INSOMNIA
     Route: 048
  15. GLYSENNID [Concomitant]
     Indication: CONSTIPATION
     Route: 048
  16. CONIEL [Concomitant]
     Indication: HYPERTENSION
     Route: 048
     Dates: start: 20070221, end: 20070319
  17. CONIEL [Concomitant]
     Route: 048
     Dates: start: 20070614, end: 20070712
  18. MEVALOTIN [Concomitant]
     Indication: HYPERLIPIDAEMIA
     Route: 048
     Dates: start: 20070221, end: 20070319
  19. MEVALOTIN [Concomitant]
     Route: 048
     Dates: start: 20070614
  20. HEPARIN [Concomitant]
     Indication: ANGIOGRAM
     Route: 042
     Dates: start: 20070220, end: 20070220
  21. HEPARIN [Concomitant]
     Route: 042
     Dates: start: 20070615, end: 20070615
  22. NOVO PROTAMINE SULFATE [Concomitant]
     Indication: ANGIOGRAM
     Route: 042
     Dates: start: 20070220, end: 20070220
  23. NOVO PROTAMINE SULFATE [Concomitant]
     Route: 042
     Dates: start: 20070615, end: 20070615
  24. IOPAMIDOL [Concomitant]
     Indication: ANGIOGRAM
     Route: 022
     Dates: start: 20070220, end: 20070220
  25. IOPAMIDOL [Concomitant]
     Route: 013
     Dates: start: 20070615, end: 20070615
  26. SEISHOKU [Concomitant]
     Indication: ANGIOGRAM
     Route: 042
     Dates: start: 20070220, end: 20070220
  27. SEISHOKU [Concomitant]
     Route: 042
     Dates: start: 20070615, end: 20070615
  28. LENDORMIN [Concomitant]
     Indication: INSOMNIA
     Route: 048
     Dates: start: 20070303, end: 20070304
  29. PLETAL [Concomitant]
     Indication: ARTERIOSCLEROSIS OBLITERANS
     Route: 048
     Dates: start: 20070510, end: 20070531
  30. PLETAL [Concomitant]
     Route: 048
     Dates: start: 20070614
  31. OPALMON [Concomitant]
     Indication: ARTERIOSCLEROSIS OBLITERANS
     Route: 048
     Dates: start: 20070510, end: 20070531
  32. OPALMON [Concomitant]
     Route: 048
     Dates: start: 20070623
  33. PRORENAL [Concomitant]
     Indication: ARTERIOSCLEROSIS OBLITERANS
     Route: 048
     Dates: start: 20070614, end: 20070622
  34. ASPIRIN [Concomitant]
     Indication: ARTERIOSCLEROSIS OBLITERANS
     Route: 048
     Dates: start: 20070616
  35. FLOMOX [Concomitant]
     Indication: INFECTION PROPHYLAXIS
     Route: 048
     Dates: start: 20070604, end: 20070614
  36. LAXOBERON [Concomitant]
     Indication: CONSTIPATION
     Route: 048
     Dates: start: 20070618, end: 20070618
  37. GE60 [Concomitant]
     Indication: CONSTIPATION
     Route: 054
     Dates: start: 20070617, end: 20070617
  38. GE60 [Concomitant]
     Route: 054
     Dates: start: 20070618, end: 20070618

REACTIONS (1)
  - ARTERIOSCLEROSIS OBLITERANS [None]
